FAERS Safety Report 14122384 (Version 2)
Quarter: 2018Q1

REPORT INFORMATION
  Report Type: Spontaneous
  Country: US (occurrence: US)
  Receive Date: 20171024
  Receipt Date: 20180123
  Transmission Date: 20180508
  Serious: No
  Sender: FDA-Public Use
  Company Number: US-IMPAX LABORATORIES, INC-2017-IPXL-02916

PATIENT
  Sex: Male
  Weight: 86 kg

DRUGS (6)
  1. RYTARY [Suspect]
     Active Substance: CARBIDOPA\LEVODOPA
     Dosage: 48.75/195MG 4 TIMES IN A ROW EVERY 4 HOUR (9 AM, 1 PM, 5 PM AND 09 PM) FOR 10 DAYS
     Route: 065
  2. RYTARY [Suspect]
     Active Substance: CARBIDOPA\LEVODOPA
     Indication: PARKINSON^S DISEASE
     Dosage: 23.75 MG/95 MG
     Route: 065
     Dates: start: 201704
  3. RYTARY [Suspect]
     Active Substance: CARBIDOPA\LEVODOPA
     Dosage: 48.75/195 MG, 1 CAPSULE THREE TIMES DAILY
     Route: 065
  4. RYTARY [Suspect]
     Active Substance: CARBIDOPA\LEVODOPA
     Dosage: 36.25/145MG AND 48.75/195 MG TOGETHER 4 TIMES A DAY (9 AM, 1 PM, 5 PM AND 09 PM) EVERY 4 HOURS
     Route: 065
  5. RYTARY [Suspect]
     Active Substance: CARBIDOPA\LEVODOPA
     Dosage: 36.25/145MG AND 48.75 /195 MG, TOGETHER 4 TIMES A DAY
     Route: 065
  6. CETIRIZINE HYDROCHLORIDE. [Concomitant]
     Active Substance: CETIRIZINE HYDROCHLORIDE
     Indication: NASAL CONGESTION
     Dosage: 1 DF, BEDTIME
     Route: 065

REACTIONS (1)
  - Tremor [Recovering/Resolving]
